FAERS Safety Report 4843056-4 (Version None)
Quarter: 2005Q4

REPORT INFORMATION
  Report Type: 
  Country: None (occurrence: None)
  Receive Date: 20051130
  Receipt Date: 20051115
  Transmission Date: 20060501
  Serious: Yes (Hospitalization)
  Sender: FDA-Public Use
  Company Number: 2005S1011109

PATIENT
  Age: 85 Year
  Sex: Male

DRUGS (8)
  1. (AERIUS) DESLORATADINE [Suspect]
     Dosage: ORAL
     Route: 048
     Dates: end: 20051004
  2. DOMPERIDONE (DOMPERIDONE) [Suspect]
     Dosage: QD; ORAL
     Route: 048
     Dates: end: 20051004
  3. FUROSEMIDE [Suspect]
     Dosage: 20 MG; QD; ORAL
     Route: 048
     Dates: end: 20051002
  4. OMEPRAZOLE [Suspect]
     Dosage: 20 MG; QD; ORAL
     Route: 048
     Dates: end: 20051002
  5. CIPRALEX (ESCITALOPRAM OXALATE) (BEING QUERIED) (10 MG) [Suspect]
     Dosage: 10 MG; QD; ORAL
     Route: 048
     Dates: end: 20051002
  6. TAMSULOSIN HYDROCHLORIDE (TAMSULOSIN HYDROCHLORIDE) (0.4 MG) [Suspect]
     Dosage: 0.4 MG; QD; ORAL
     Route: 048
     Dates: end: 20051002
  7. PERINDOPRIL [Concomitant]
  8. ZOPICLONE [Concomitant]

REACTIONS (1)
  - HYPONATRAEMIA [None]
